FAERS Safety Report 7427916-6 (Version None)
Quarter: 2011Q2

REPORT INFORMATION
  Report Type: 
  Country: None (occurrence: None)
  Receive Date: 20110421
  Receipt Date: 20110309
  Transmission Date: 20111010
  Serious: Yes (Hospitalization, Other)
  Sender: FDA-Public Use
  Company Number: US-BAYER-201027320NA

PATIENT
  Age: 17 Year
  Sex: Female
  Weight: 120 kg

DRUGS (4)
  1. YASMIN [Suspect]
     Indication: PRODUCT USED FOR UNKNOWN INDICATION
     Route: 048
  2. YAZ [Suspect]
     Indication: PRODUCT USED FOR UNKNOWN INDICATION
     Route: 048
  3. ZYRTEC [Concomitant]
  4. YASMIN [Suspect]

REACTIONS (3)
  - CHOLECYSTITIS CHRONIC [None]
  - CHOLESTEROSIS [None]
  - GALLBLADDER INJURY [None]
